FAERS Safety Report 4770914-1 (Version None)
Quarter: 2005Q3

REPORT INFORMATION
  Report Type: 
  Country: None (occurrence: None)
  Receive Date: 20050915
  Receipt Date: 20050715
  Transmission Date: 20060218
  Serious: Yes (Other)
  Sender: FDA-Public Use
  Company Number: US-KINGPHARMUSA00001-K200500968

PATIENT
  Age: 35 Year
  Sex: Female
  Weight: 66 kg

DRUGS (22)
  1. CORTISPORIN [Suspect]
     Indication: EAR INFECTION
     Dosage: 3 GTT, TID
     Route: 001
     Dates: start: 20020508, end: 20020731
  2. CORTISPORIN [Suspect]
     Dosage: 6-8 GTTS, TID
     Route: 001
     Dates: start: 20020731, end: 20020803
  3. CIPRO [Suspect]
     Indication: OTITIS EXTERNA
     Dosage: 750 MG, BID
     Route: 048
     Dates: start: 20020515, end: 20020517
  4. CIPRO [Suspect]
     Dosage: 750 MG, BID
     Dates: start: 20020613, end: 20020626
  5. CIPRO [Suspect]
     Dosage: 750 MG, BID
     Dates: start: 20020709, end: 20020722
  6. GENTIAN VIOLET [Concomitant]
     Indication: EAR INFECTION
     Route: 001
     Dates: start: 20020523
  7. CSF [Concomitant]
     Indication: EAR INFECTION
     Dosage: UNK, SINGLE
     Route: 001
     Dates: start: 20020515
  8. FLOXIN OTIC [Suspect]
     Indication: EAR INFECTION
     Dosage: 6-8 GTTS, TID
     Route: 001
     Dates: start: 20020428, end: 20020508
  9. FLOXIN OTIC [Suspect]
     Route: 001
     Dates: start: 20020807
  10. FLOXIN OTIC [Suspect]
     Dosage: UNK, TID
     Route: 001
     Dates: start: 20020811
  11. FLOXIN OTIC [Suspect]
     Route: 001
     Dates: start: 20020828
  12. FLOXIN OTIC [Suspect]
     Route: 001
     Dates: start: 20020909
  13. FLOXIN OTIC [Suspect]
     Route: 001
     Dates: start: 20030507
  14. NEOSPORIN [Concomitant]
     Dates: start: 20020515
  15. AMBIEN [Concomitant]
     Indication: INSOMNIA
     Dosage: UNK,UNK
  16. PAXIL [Concomitant]
     Dosage: UNK,UNK
  17. ZOLOFT [Concomitant]
     Dosage: UNK,UNK
  18. CIPRO HC [Concomitant]
     Indication: EAR PRURITUS
     Dates: start: 20020919
  19. AVELOX [Concomitant]
     Dates: start: 20021014
  20. ATARAX [Concomitant]
     Dates: start: 20030401
  21. TOPICAL STEROID [Concomitant]
     Dates: start: 20030401
  22. LEVAQUIN [Concomitant]
     Dates: start: 20030507

REACTIONS (23)
  - ADHESION [None]
  - CERUMEN IMPACTION [None]
  - COMPLEX REGIONAL PAIN SYNDROME [None]
  - CONDITION AGGRAVATED [None]
  - CONDUCTIVE DEAFNESS [None]
  - DEAFNESS UNILATERAL [None]
  - DRUG INTERACTION [None]
  - EAR DISORDER [None]
  - EAR INFECTION [None]
  - EAR PAIN [None]
  - EAR PRURITUS [None]
  - HEARING IMPAIRED [None]
  - MUCOSAL DISCOLOURATION [None]
  - NEURALGIA [None]
  - OEDEMA MUCOSAL [None]
  - OTITIS EXTERNA [None]
  - OTITIS MEDIA CHRONIC [None]
  - OTORRHOEA [None]
  - OTOTOXICITY [None]
  - TEMPOROMANDIBULAR JOINT SYNDROME [None]
  - TINNITUS [None]
  - TYMPANIC MEMBRANE PERFORATION [None]
  - VERTIGO [None]
